FAERS Safety Report 4709208-9 (Version None)
Quarter: 2005Q3

REPORT INFORMATION
  Report Type: 
  Country: None (occurrence: None)
  Receive Date: 20050707
  Receipt Date: 20050707
  Transmission Date: 20060218
  Serious: Yes (Hospitalization, Other)
  Sender: FDA-Public Use
  Company Number: None

PATIENT
  Sex: Female
  Weight: 105 kg

DRUGS (5)
  1. DOXORUBICIN [Suspect]
     Indication: HODGKIN'S DISEASE
     Dosage: 25 MG/M2 IV PUSH
     Route: 042
     Dates: start: 20050427
  2. VINBLASTINE [Suspect]
     Dosage: 6 MG/M2 IV PUSH
  3. GEMCITABINE [Suspect]
     Dosage: 800 MG/M2 IV BOLUS
     Route: 040
  4. ATIVAN [Concomitant]
  5. ZOFRAN [Concomitant]

REACTIONS (1)
  - SKIN REACTION [None]
